FAERS Safety Report 23351079 (Version 3)
Quarter: 2024Q1

REPORT INFORMATION
  Report Type: Spontaneous
  Country: US (occurrence: US)
  Receive Date: 20231229
  Receipt Date: 20240208
  Transmission Date: 20240409
  Serious: Yes (Hospitalization, Other)
  Sender: FDA-Public Use
  Company Number: US-PFIZER INC-202300455234

PATIENT
  Age: 67 Year
  Sex: Male
  Weight: 104.3 kg

DRUGS (4)
  1. VELSIPITY [Suspect]
     Active Substance: ETRASIMOD ARGININE
     Indication: Colitis ulcerative
     Dosage: 2 MG
     Dates: start: 20231222, end: 20240108
  2. VELSIPITY [Suspect]
     Active Substance: ETRASIMOD ARGININE
     Dosage: UNK
     Dates: start: 20231226, end: 20240104
  3. REMICADE [Concomitant]
     Active Substance: INFLIXIMAB
     Dosage: UNK
     Route: 042
  4. MESALAMINE [Concomitant]
     Active Substance: MESALAMINE
     Dosage: 4 QD (DAILY)
     Dates: end: 20240104

REACTIONS (13)
  - Gastrooesophageal reflux disease [Recovered/Resolved]
  - Dizziness [Recovered/Resolved]
  - Vertigo [Recovered/Resolved]
  - Nausea [Recovered/Resolved]
  - Bradycardia [Unknown]
  - Syncope [Unknown]
  - Diarrhoea [Unknown]
  - Hypotension [Unknown]
  - Dyspnoea [Unknown]
  - Dehydration [Not Recovered/Not Resolved]
  - Large intestinal ulcer [Unknown]
  - Drug ineffective [Unknown]
  - Fatigue [Unknown]

NARRATIVE: CASE EVENT DATE: 20231227
